FAERS Safety Report 13793659 (Version 6)
Quarter: 2017Q4

REPORT INFORMATION
  Report Type: Report from Study
  Country: None (occurrence: ES)
  Receive Date: 20170726
  Receipt Date: 20171124
  Transmission Date: 20180320
  Serious: Yes (Other)
  Sender: FDA-Public Use
  Company Number: ES-ABBVIE-17P-144-2031608-00

PATIENT
  Age: 83 Year
  Sex: Male

DRUGS (1)
  1. DUODOPA [Suspect]
     Active Substance: CARBIDOPA\LEVODOPA
     Indication: PARKINSON^S DISEASE
     Route: 050
     Dates: start: 20080529

REACTIONS (16)
  - Drug ineffective [Unknown]
  - Abdominal discomfort [Unknown]
  - Anaemia [Recovered/Resolved]
  - Stoma site haemorrhage [Recovered/Resolved]
  - Asthenia [Not Recovered/Not Resolved]
  - Malaise [Unknown]
  - Anxiety [Recovering/Resolving]
  - Postoperative wound complication [Unknown]
  - Device occlusion [Unknown]
  - Intentional product use issue [Recovered/Resolved]
  - Incorrect route of drug administration [Recovered/Resolved]
  - Haematochezia [Unknown]
  - On and off phenomenon [Not Recovered/Not Resolved]
  - Syncope [Recovering/Resolving]
  - Decreased appetite [Recovering/Resolving]
  - Somnolence [Not Recovered/Not Resolved]

NARRATIVE: CASE EVENT DATE: 201707
